FAERS Safety Report 9412256 (Version 1)
Quarter: 2013Q2

REPORT INFORMATION
  Report Type: Spontaneous
  Country: DE (occurrence: None)
  Receive Date: 20130423
  Receipt Date: 20130423
  Transmission Date: 20140414
  Serious: Yes (Disabling)
  Sender: FDA-Public Use
  Company Number: DE-20120226

PATIENT
  Age: 39 Year
  Sex: Male

DRUGS (5)
  1. DOTAREM [Suspect]
     Indication: NUCLEAR MAGNETIC RESONANCE IMAGING
     Route: 042
     Dates: start: 20110415, end: 20110415
  2. MAGNEVIST [Suspect]
     Indication: COMPUTERISED TOMOGRAM
     Route: 042
     Dates: start: 20110114, end: 20110114
  3. NONSTEROIDAL ANTI-INFLAMMATORY DRUGS (UNKNOWN) (UNKNOWN) [Concomitant]
  4. IODINATED CONTRAST MEDIA (IODINE) (IODINE) [Concomitant]
  5. GASTROLUX (DIATRIZOATE MEGLUMINE) (DIATRIZOATE MEGLUMINE) [Concomitant]

REACTIONS (4)
  - Nephrogenic systemic fibrosis [None]
  - Polyneuropathy [None]
  - Cardiomyopathy [None]
  - Skin fibrosis [None]
